FAERS Safety Report 7577554-X (Version None)
Quarter: 2011Q2

REPORT INFORMATION
  Report Type: 
  Country: None (occurrence: None)
  Receive Date: 20110628
  Receipt Date: 20110624
  Transmission Date: 20111010
  Serious: Yes (Hospitalization)
  Sender: FDA-Public Use
  Company Number: IT-BRISTOL-MYERS SQUIBB COMPANY-15514102

PATIENT
  Age: 68 Year
  Sex: Male
  Weight: 80 kg

DRUGS (3)
  1. CISPLATIN [Suspect]
     Indication: NON-SMALL CELL LUNG CANCER
     Dosage: LAST THERAPY ON 9DEC10
     Route: 065
     Dates: start: 20101117
  2. ALIMTA [Suspect]
     Indication: NON-SMALL CELL LUNG CANCER
     Dosage: LAST THERAPY ON 9DEC10
     Route: 065
     Dates: start: 20101117
  3. PROPRANOLOL [Concomitant]
     Indication: GASTROINTESTINAL DISORDER
     Dates: start: 20101110

REACTIONS (1)
  - ARTERIAL THROMBOSIS LIMB [None]
